FAERS Safety Report 17670541 (Version 3)
Quarter: 2020Q2

REPORT INFORMATION
  Report Type: Spontaneous
  Country: US (occurrence: US)
  Receive Date: 20200415
  Receipt Date: 20200601
  Transmission Date: 20200713
  Serious: Yes (Hospitalization)
  Sender: FDA-Public Use
  Company Number: US-SHIRE-US202013430

PATIENT
  Sex: Male

DRUGS (1)
  1. GATTEX [Suspect]
     Active Substance: TEDUGLUTIDE\WATER
     Indication: PRODUCT USED FOR UNKNOWN INDICATION
     Dosage: (0.4500 UNITS UNKNOWN), 1X/DAY:QD
     Route: 058
     Dates: start: 20200128

REACTIONS (2)
  - Hospitalisation [Recovered/Resolved]
  - Gastrointestinal stoma output abnormal [Unknown]
